FAERS Safety Report 9689473 (Version 1)
Quarter: 2013Q4

REPORT INFORMATION
  Report Type: Report from Study
  Country: US (occurrence: US)
  Receive Date: 20131114
  Receipt Date: 20131114
  Transmission Date: 20140711
  Serious: Yes (Other)
  Sender: FDA-Public Use
  Company Number: US-ABBVIE-13P-163-1167105-00

PATIENT
  Age: 49 Year
  Sex: Female
  Weight: 54.48 kg

DRUGS (10)
  1. HUMIRA [Suspect]
     Indication: COLITIS ULCERATIVE
     Dates: start: 20130710, end: 20130710
  2. HUMIRA [Suspect]
     Indication: ARTHRITIS
     Dates: start: 20130711, end: 20130711
  3. HUMIRA [Suspect]
     Dates: start: 20130724, end: 20130724
  4. HUMIRA [Suspect]
     Dates: start: 20130807, end: 20131017
  5. ESTRADIOL-NORETHINDRONE [Concomitant]
     Indication: HORMONE REPLACEMENT THERAPY
  6. ARMOUR THYROID [Concomitant]
     Indication: HYPOTHYROIDISM
  7. FOLIC ACID [Concomitant]
     Indication: PRODUCT USED FOR UNKNOWN INDICATION
  8. ASACOL [Concomitant]
     Indication: COLITIS ULCERATIVE
  9. COLAZOL [Concomitant]
     Indication: COLITIS ULCERATIVE
  10. PREDNISONE [Concomitant]
     Indication: COLITIS ULCERATIVE

REACTIONS (2)
  - Mammogram abnormal [Not Recovered/Not Resolved]
  - Arthritis [Unknown]
